FAERS Safety Report 4768356-8 (Version None)
Quarter: 2005Q3

REPORT INFORMATION
  Report Type: 
  Country: None (occurrence: None)
  Receive Date: 20050906
  Receipt Date: 20050712
  Transmission Date: 20060218
  Serious: No
  Sender: FDA-Public Use
  Company Number: 2005-BP-11716BP

PATIENT
  Sex: Female

DRUGS (9)
  1. SPIRIVA [Suspect]
     Indication: CHRONIC OBSTRUCTIVE PULMONARY DISEASE
     Dosage: 18 MCG (18 MCG, QD), IH
     Route: 055
     Dates: start: 20050701
  2. ELAVIL [Suspect]
     Indication: CYST
     Dosage: PO
     Route: 048
     Dates: start: 19890101
  3. XANAX [Concomitant]
  4. DARVOCET [Concomitant]
  5. ZYRTEC [Concomitant]
  6. FLOVENT [Concomitant]
  7. AVALIDE (KARVEA HCT) [Concomitant]
  8. VERAPAMIL [Concomitant]
  9. ALBUTEROL [Concomitant]

REACTIONS (2)
  - HEADACHE [None]
  - SOMNOLENCE [None]
